FAERS Safety Report 16090980 (Version 2)
Quarter: 2019Q2

REPORT INFORMATION
  Report Type: Report from Study
  Country: US (occurrence: US)
  Receive Date: 20190319
  Receipt Date: 20190523
  Transmission Date: 20190711
  Serious: Yes (Death)
  Sender: FDA-Public Use
  Company Number: US-VANDA PHARMACEUTICALS, INC-2019TASUS002946

PATIENT
  Sex: Male

DRUGS (1)
  1. HETLIOZ [Suspect]
     Active Substance: TASIMELTEON
     Indication: NON-24-HOUR SLEEP-WAKE DISORDER
     Dosage: 20 MG, QD
     Dates: start: 201706

REACTIONS (2)
  - Pneumonia aspiration [Fatal]
  - Arteriosclerosis coronary artery [Fatal]
